FAERS Safety Report 8357484-6 (Version None)
Quarter: 2012Q2

REPORT INFORMATION
  Report Type: 
  Country: None (occurrence: None)
  Receive Date: 20120511
  Receipt Date: 20120508
  Transmission Date: 20120825
  Serious: Yes (Hospitalization, Other)
  Sender: FDA-Public Use
  Company Number: 2008-187739-NL

PATIENT
  Age: 21 Year
  Sex: Female
  Weight: 108.8633 kg

DRUGS (3)
  1. LORTAB [Concomitant]
  2. CEFZIL [Concomitant]
  3. NUVARING [Suspect]
     Indication: CONTRACEPTION
     Dosage: VAG
     Route: 067
     Dates: start: 20030501, end: 20061001

REACTIONS (15)
  - MIGRAINE [None]
  - MUSCULOSKELETAL PAIN [None]
  - PREGNANCY [None]
  - CHEST DISCOMFORT [None]
  - NASAL SEPTUM DEVIATION [None]
  - PULMONARY INFARCTION [None]
  - VOMITING [None]
  - ACQUIRED DIAPHRAGMATIC EVENTRATION [None]
  - PLEURAL EFFUSION [None]
  - TRICUSPID VALVE INCOMPETENCE [None]
  - UPPER RESPIRATORY TRACT INFECTION [None]
  - PULMONARY EMBOLISM [None]
  - LUNG INFILTRATION [None]
  - HEADACHE [None]
  - MATERNAL EXPOSURE BEFORE PREGNANCY [None]
